FAERS Safety Report 10741444 (Version 1)
Quarter: 2015Q1

REPORT INFORMATION
  Report Type: Spontaneous
  Country: US (occurrence: None)
  Receive Date: 20150123
  Receipt Date: 20150123
  Transmission Date: 20150721
  Serious: Yes (Hospitalization)
  Sender: FDA-Public Use
  Company Number: None

PATIENT
  Age: 54 Year
  Sex: Female
  Weight: 91.2 kg

DRUGS (4)
  1. RITUXIMAB (MOAB C2B8 ANTI CD20, CHIMERIC) [Suspect]
     Active Substance: RITUXIMAB
     Dates: end: 20150102
  2. METHOTREXATE [Suspect]
     Active Substance: METHOTREXATE
     Dates: end: 20150102
  3. PROCARBAZINE [Suspect]
     Active Substance: PROCARBAZINE
     Dates: end: 20141209
  4. VINCRISTINE SULFATE. [Suspect]
     Active Substance: VINCRISTINE SULFATE
     Dates: end: 20150102

REACTIONS (1)
  - Pneumonia [None]

NARRATIVE: CASE EVENT DATE: 20150111
